FAERS Safety Report 7129805-3 (Version None)
Quarter: 2010Q4

REPORT INFORMATION
  Report Type: 
  Country: None (occurrence: None)
  Receive Date: 20101130
  Receipt Date: 20100810
  Transmission Date: 20110411
  Serious: Yes (Other)
  Sender: FDA-Public Use
  Company Number: US-AMGEN-QUU425143

PATIENT

DRUGS (13)
  1. NPLATE [Suspect]
     Indication: IDIOPATHIC THROMBOCYTOPENIC PURPURA
     Dosage: 950 A?G, QWK
     Route: 058
     Dates: start: 20100310, end: 20100616
  2. NPLATE [Suspect]
     Dosage: 950 A?G, QWK
     Route: 058
     Dates: start: 20100310, end: 20100616
  3. NPLATE [Suspect]
     Dosage: 950 A?G, QWK
     Route: 058
     Dates: start: 20100310, end: 20100616
  4. ELTROMBOPAG [Concomitant]
  5. SIMVASTATIN [Concomitant]
     Dosage: 20 MG, UNK
  6. FUROSEMIDE [Concomitant]
     Dosage: 40 MG, UNK
  7. DESIPRAMINE HCL [Concomitant]
     Dosage: 75 MG, UNK
  8. CITALOPRAM [Concomitant]
     Dosage: 20 MG, UNK
  9. HYDROXYZINE [Concomitant]
     Dosage: 10 MG, UNK
  10. HYDROCODONE [Concomitant]
     Dosage: 5 MG, UNK
  11. STOOL SOFTENER [Concomitant]
  12. FISH OIL [Concomitant]
  13. ALPRAZOLAM [Concomitant]
     Dosage: .5 MG, PRN

REACTIONS (1)
  - DRUG INEFFECTIVE [None]
